FAERS Safety Report 11840572 (Version 1)
Quarter: 2015Q4

REPORT INFORMATION
  Report Type: Spontaneous
  Country: US (occurrence: US)
  Receive Date: 20151216
  Receipt Date: 20151216
  Transmission Date: 20160305
  Serious: Yes (Hospitalization)
  Sender: FDA-Public Use
  Company Number: US-VIVUS-2015V1000576

PATIENT
  Age: 69 Year
  Sex: Male
  Weight: 97.61 kg

DRUGS (2)
  1. LOSARTAN. [Concomitant]
     Active Substance: LOSARTAN
     Indication: HYPERTENSION
     Route: 048
  2. QSYMIA [Suspect]
     Active Substance: PHENTERMINE HYDROCHLORIDE\TOPIRAMATE
     Indication: WEIGHT DECREASED
     Route: 048
     Dates: start: 201511, end: 201511

REACTIONS (4)
  - Anal paraesthesia [Not Recovered/Not Resolved]
  - Hypersensitivity [Recovered/Resolved]
  - Lip swelling [Unknown]
  - Constipation [Unknown]

NARRATIVE: CASE EVENT DATE: 201511
